FAERS Safety Report 5443281-8 (Version None)
Quarter: 2007Q3

REPORT INFORMATION
  Report Type: 
  Country: None (occurrence: None)
  Receive Date: 20070905
  Receipt Date: 20070829
  Transmission Date: 20080115
  Serious: Yes (Life-Threatening, Hospitalization)
  Sender: FDA-Public Use
  Company Number: CH-BAYER-200715017GDS

PATIENT
  Age: 71 Year
  Sex: Female

DRUGS (7)
  1. ASPIRIN [Suspect]
     Indication: MYOCARDIAL INFARCTION
     Route: 065
  2. NADROPARIN CALCIUM [Suspect]
     Indication: MYOCARDIAL INFARCTION
     Route: 065
  3. NADROPARIN CALCIUM [Suspect]
     Route: 065
  4. NADROPARIN CALCIUM [Suspect]
     Route: 065
  5. CONTRAST MEDIUM [Suspect]
     Indication: ARTERIOGRAM CORONARY
     Route: 065
  6. RENITEN [Suspect]
     Indication: MYOCARDIAL INFARCTION
     Route: 065
  7. PHENPROCOUMON [Concomitant]
     Indication: ANTICOAGULANT THERAPY
     Route: 065

REACTIONS (14)
  - ABDOMINAL PAIN [None]
  - ANURIA [None]
  - BLOOD CREATININE INCREASED [None]
  - CANDIDA SEPSIS [None]
  - CARDIAC ANEURYSM [None]
  - HAEMODIALYSIS [None]
  - RENAL FAILURE ACUTE [None]
  - RENAL TUBULAR NECROSIS [None]
  - RETROPERITONEAL HAEMATOMA [None]
  - RETROPERITONEAL HAEMORRHAGE [None]
  - SHOCK [None]
  - TRAUMATIC ANURIA [None]
  - URETERIC OBSTRUCTION [None]
  - UROSEPSIS [None]
